FAERS Safety Report 21916633 (Version 1)
Quarter: 2023Q1

REPORT INFORMATION
  Report Type: Spontaneous
  Country: US (occurrence: None)
  Receive Date: 20230126
  Receipt Date: 20230126
  Transmission Date: 20230418
  Serious: Yes (Hospitalization, Disabling)
  Sender: FDA-Public Use
  Company Number: None

PATIENT
  Age: 45 Year
  Sex: Female

DRUGS (1)
  1. JARDIANCE [Suspect]
     Active Substance: EMPAGLIFLOZIN
     Indication: Diabetes mellitus
     Dates: start: 20230107, end: 20230123

REACTIONS (12)
  - Asthenia [None]
  - Dyspnoea [None]
  - Pruritus [None]
  - Rash [None]
  - Decreased appetite [None]
  - Somnolence [None]
  - Agitation [None]
  - Vulvovaginal mycotic infection [None]
  - Vulvovaginal burning sensation [None]
  - Vulvovaginal discomfort [None]
  - Skin exfoliation [None]
  - Vulvovaginal swelling [None]

NARRATIVE: CASE EVENT DATE: 20230115
